FAERS Safety Report 19840883 (Version 1)
Quarter: 2021Q3

REPORT INFORMATION
  Report Type: Spontaneous
  Country: DE (occurrence: DE)
  Receive Date: 20210916
  Receipt Date: 20210916
  Transmission Date: 20211014
  Serious: Yes (Hospitalization)
  Sender: FDA-Public Use
  Company Number: DE-TEVA-2021-DE-1951574

PATIENT
  Age: 73 Year
  Sex: Male
  Weight: 71 kg

DRUGS (14)
  1. METOCLOPRAMID [Concomitant]
     Active Substance: METOCLOPRAMIDE
     Dosage: 10 MG, AS NEEDED
  2. BUDESONID [Concomitant]
     Active Substance: BUDESONIDE
     Dosage: 800 MICROGRAM DAILY;  1?0?1?0
  3. ALENDRONSAURE [Concomitant]
     Active Substance: ALENDRONIC ACID
     Dosage: 70 MG, SCHEME
  4. BISOPROLOL [Suspect]
     Active Substance: BISOPROLOL
     Dosage: 2.5 MILLIGRAM DAILY; 1?0?0?0
  5. PANTOPRAZOL [Concomitant]
     Active Substance: PANTOPRAZOLE SODIUM
     Dosage: 40 MILLIGRAM DAILY; 1?0?0?0
  6. AMBROXOL [Concomitant]
     Active Substance: AMBROXOL
     Dosage: 15 MILLIGRAM DAILY; 1?0?0?0
  7. AZITHROMYCIN ANHYDROUS. [Concomitant]
     Active Substance: AZITHROMYCIN ANHYDROUS
     Dosage: 500 MG, SCHEME
  8. SIMVASTATIN. [Concomitant]
     Active Substance: SIMVASTATIN
     Dosage: 20 MILLIGRAM DAILY; 0?0?1?0
  9. SALBUTAMOL [Concomitant]
     Active Substance: ALBUTEROL
     Dosage: REQUIREMENT
  10. KALIUM [Concomitant]
     Active Substance: POTASSIUM CHLORIDE
     Dosage: 4 DOSAGE FORMS DAILY; 2?2?0?0
  11. MIRTAZAPIN [Concomitant]
     Active Substance: MIRTAZAPINE
     Dosage: 15 MILLIGRAM DAILY; 0?0?1?0
  12. COLECALCIFEROL (VITAMIN D) [Concomitant]
     Active Substance: CHOLECALCIFEROL
     Dosage: 1000 IU (INTERNATIONAL UNIT) DAILY; 1?0?0?0
  13. MORPHIN [Concomitant]
     Active Substance: MORPHINE
     Dosage: 10 MILLIGRAM DAILY; 1?0?0?0
  14. IPRATROPIUM BROMIDE. [Concomitant]
     Active Substance: IPRATROPIUM BROMIDE
     Dosage: REQUIREMENT

REACTIONS (13)
  - Cyanosis [Unknown]
  - Acute respiratory failure [Unknown]
  - Renal impairment [Unknown]
  - General physical health deterioration [Unknown]
  - Dyspnoea [Unknown]
  - Tachypnoea [Unknown]
  - Weight decreased [Unknown]
  - Electrocardiogram abnormal [Unknown]
  - Condition aggravated [Unknown]
  - Anaemia [Unknown]
  - Chronic obstructive pulmonary disease [Unknown]
  - Cough [Unknown]
  - Systemic infection [Unknown]
